FAERS Safety Report 21514532 (Version 1)
Quarter: 2022Q4

REPORT INFORMATION
  Report Type: Spontaneous
  Country: FR (occurrence: FR)
  Receive Date: 20221027
  Receipt Date: 20221027
  Transmission Date: 20230113
  Serious: Yes (Hospitalization)
  Sender: FDA-Public Use
  Company Number: None

PATIENT
  Age: 43 Year
  Sex: Female
  Weight: 79 kg

DRUGS (7)
  1. KINERET [Suspect]
     Active Substance: ANAKINRA
     Indication: Still^s disease
     Dosage: SOLUTION FOR INJECTION IN VIAL
     Dates: start: 20210605, end: 20210628
  2. KINERET [Suspect]
     Active Substance: ANAKINRA
     Dates: start: 20210515, end: 20210604
  3. CALCIUM CARBONATE\CHOLECALCIFEROL [Concomitant]
     Active Substance: CALCIUM CARBONATE\CHOLECALCIFEROL
     Indication: Mineral supplementation
  4. POTASSIUM CHLORIDE [Concomitant]
     Active Substance: POTASSIUM CHLORIDE
     Indication: Hypokalaemia
     Dosage: CAPSULE
  5. PREDNISONE [Concomitant]
     Active Substance: PREDNISONE
     Indication: Still^s disease
     Dosage: SCORED TABLET
     Dates: start: 202105
  6. FEXOFENADINE HYDROCHLORIDE [Concomitant]
     Active Substance: FEXOFENADINE HYDROCHLORIDE
     Indication: Hypersensitivity
  7. MAGNESIUM PIDOLATE [Concomitant]
     Active Substance: MAGNESIUM PIDOLATE
     Indication: Mineral supplementation
     Dosage: POWDER FOR ORAL SOLUTION

REACTIONS (2)
  - Hepatic cytolysis [Recovered/Resolved]
  - Injection site pain [Recovered/Resolved]

NARRATIVE: CASE EVENT DATE: 20210501
